FAERS Safety Report 17567078 (Version 1)
Quarter: 2020Q1

REPORT INFORMATION
  Report Type: Spontaneous
  Country: IT (occurrence: IT)
  Receive Date: 20200320
  Receipt Date: 20200320
  Transmission Date: 20200409
  Serious: Yes (Hospitalization, Other)
  Sender: FDA-Public Use
  Company Number: IT-AUROBINDO-AUR-APL-2020-014729

PATIENT
  Age: 76 Year
  Sex: Male

DRUGS (2)
  1. PARACETAMOL SOLUTION FOR INFUSION [Suspect]
     Active Substance: ACETAMINOPHEN
     Indication: PYREXIA
     Dosage: 100 MILLIGRAM, AS NECESSARY
     Route: 041
     Dates: start: 20200209, end: 20200211
  2. TAZOCIN [Suspect]
     Active Substance: PIPERACILLIN SODIUM\TAZOBACTAM SODIUM
     Indication: PNEUMONITIS
     Dosage: 4.5 GRAM, ONCE A DAY
     Route: 043
     Dates: start: 20200209, end: 20200211

REACTIONS (3)
  - Urticaria [Recovering/Resolving]
  - Blister [Recovering/Resolving]
  - Stevens-Johnson syndrome [Recovering/Resolving]

NARRATIVE: CASE EVENT DATE: 20200211
